FAERS Safety Report 8550870-0 (Version None)
Quarter: 2012Q3

REPORT INFORMATION
  Report Type: 
  Country: None (occurrence: None)
  Receive Date: 20120730
  Receipt Date: 20111010
  Transmission Date: 20120928
  Serious: No
  Sender: FDA-Public Use
  Company Number: US-GLAXOSMITHKLINE-A0948469A

PATIENT
  Age: 73 Year
  Sex: Female

DRUGS (2)
  1. NO CONCURRENT MEDICATION [Concomitant]
  2. ZANTAC [Suspect]
     Indication: DYSPEPSIA
     Dosage: 150MG THREE TIMES PER DAY
     Route: 048
     Dates: start: 20010101, end: 20010101

REACTIONS (1)
  - DYSKINESIA [None]
